FAERS Safety Report 14456428 (Version 2)
Quarter: 2018Q2

REPORT INFORMATION
  Report Type: Spontaneous
  Country: US (occurrence: US)
  Receive Date: 20180130
  Receipt Date: 20180422
  Transmission Date: 20180711
  Serious: Yes (Hospitalization, Other)
  Sender: FDA-Public Use
  Company Number: US-APOTEX-2018AP006180

PATIENT
  Age: 46 Year
  Sex: Female

DRUGS (3)
  1. CHARCOAL [Concomitant]
     Active Substance: ACTIVATED CHARCOAL
     Indication: PRODUCT USED FOR UNKNOWN INDICATION
     Dosage: 50 MG, UNK
     Route: 048
  2. HYDROXYCHLOROQUINE [Interacting]
     Active Substance: HYDROXYCHLOROQUINE
     Indication: PRODUCT USED FOR UNKNOWN INDICATION
     Dosage: 4 DF, SINGLE
     Route: 048
  3. ONDANSETRON [Suspect]
     Active Substance: ONDANSETRON
     Indication: PRODUCT USED FOR UNKNOWN INDICATION
     Dosage: 4 MG, UNK
     Route: 042

REACTIONS (3)
  - Ventricular tachycardia [Recovered/Resolved]
  - Drug interaction [Unknown]
  - Torsade de pointes [Recovered/Resolved]
